FAERS Safety Report 8277580-1 (Version None)
Quarter: 2012Q2

REPORT INFORMATION
  Report Type: 
  Country: None (occurrence: None)
  Receive Date: 20120412
  Receipt Date: 20120402
  Transmission Date: 20120825
  Serious: Yes (Other)
  Sender: FDA-Public Use
  Company Number: US-PFIZER INC-2012074886

PATIENT
  Sex: Female

DRUGS (2)
  1. WARFARIN SODIUM [Suspect]
     Dosage: UNK
  2. TIKOSYN [Suspect]
     Dosage: UNK
     Dates: start: 20060101

REACTIONS (2)
  - ATRIAL FIBRILLATION [None]
  - PNEUMONITIS [None]
